FAERS Safety Report 25330993 (Version 1)
Quarter: 2025Q2

REPORT INFORMATION
  Report Type: Spontaneous
  Country: PE (occurrence: PE)
  Receive Date: 20250519
  Receipt Date: 20250519
  Transmission Date: 20250716
  Serious: Yes (Other)
  Sender: FRESENIUS KABI
  Company Number: PE-FreseniusKabi-FK202507076

PATIENT
  Age: 39 Year
  Sex: Female
  Weight: 62 kg

DRUGS (4)
  1. CARBOPLATIN [Suspect]
     Active Substance: CARBOPLATIN
     Indication: Cervix carcinoma
     Dosage: 5TH CHEMOTHERAPY SESSION?500 MG OVER 1 HOUR STARTED AT 13:30 PM VIA INFUSION PUMP
     Route: 042
     Dates: start: 20250429, end: 20250429
  2. PACLITAXEL [Concomitant]
     Active Substance: PACLITAXEL
     Indication: Cervix carcinoma
     Dosage: 5TH CHEMOTHERAPY SESSION?230 MG IN THREE HOUR
     Route: 042
     Dates: start: 20250429, end: 20250429
  3. CLNA (sodium chloride) [Concomitant]
     Indication: Cervix carcinoma
     Dosage: 800 CC OVER 3 HOUR VIA INFUSION PUMP
     Dates: start: 20250429, end: 20250429
  4. DEXTROSE [Concomitant]
     Active Substance: DEXTROSE MONOHYDRATE
     Indication: Cervix carcinoma
     Dosage: 500 CC OVER 60 MINUTES VIA INFUSION PUMP
     Dates: start: 20250429, end: 20250429

REACTIONS (1)
  - Anaphylactic reaction [Recovered/Resolved]

NARRATIVE: CASE EVENT DATE: 20250429
